FAERS Safety Report 7568536-2 (Version None)
Quarter: 2011Q2

REPORT INFORMATION
  Report Type: 
  Country: None (occurrence: None)
  Receive Date: 20110623
  Receipt Date: 20110620
  Transmission Date: 20111010
  Serious: Yes (Death)
  Sender: FDA-Public Use
  Company Number: JP-PFIZER INC-2011138404

PATIENT
  Age: 84 Year
  Sex: Male

DRUGS (1)
  1. ZOSYN [Suspect]
     Indication: PNEUMONIA
     Dosage: 2.25 G DAILY
     Route: 041
     Dates: start: 20110510, end: 20110510

REACTIONS (1)
  - SHOCK [None]
